FAERS Safety Report 9201664 (Version 3)
Quarter: 2013Q2

REPORT INFORMATION
  Report Type: Spontaneous
  Country: FR (occurrence: FR)
  Receive Date: 20130401
  Receipt Date: 20130424
  Transmission Date: 20140414
  Serious: Yes (Other)
  Sender: FDA-Public Use
  Company Number: PHHY2013FR031226

PATIENT
  Age: 41 Year
  Sex: Male
  Weight: 60 kg

DRUGS (3)
  1. GILENYA [Suspect]
     Indication: RELAPSING-REMITTING MULTIPLE SCLEROSIS
     Dosage: 0.5 MG, QD
     Route: 048
     Dates: start: 20121201, end: 20130301
  2. TRAMADOL [Concomitant]
     Dosage: 100 MG, QD
     Route: 048
     Dates: start: 2009
  3. LIORESAL [Concomitant]

REACTIONS (3)
  - Hepatocellular injury [Recovered/Resolved]
  - Transaminases increased [Recovered/Resolved]
  - Gamma-glutamyltransferase increased [Recovering/Resolving]
